FAERS Safety Report 20605770 (Version 1)
Quarter: 2022Q1

REPORT INFORMATION
  Report Type: Spontaneous
  Country: NL (occurrence: NL)
  Receive Date: 20220317
  Receipt Date: 20220317
  Transmission Date: 20220423
  Serious: Yes (Other)
  Sender: FDA-Public Use
  Company Number: None

PATIENT
  Age: 88 Year
  Sex: Female
  Weight: 68 kg

DRUGS (12)
  1. CIPROFLOXACIN [Suspect]
     Active Substance: CIPROFLOXACIN
     Indication: Obstructive pancreatitis
     Dosage: 1000 MILLIGRAM DAILY; STRENGTH : 500 MG / BRAND NAME NOT SPECIFIED
     Dates: start: 20220204, end: 20220214
  2. METFORMIN [Concomitant]
     Active Substance: METFORMIN HYDROCHLORIDE
     Dosage: 500 MG (MILLIGRAM), STRENGTH : 500 MG, BRAND NAME NOT SPECIFIED, THERAPY START DATE  AND  THERAPY EN
  3. CHOLECALCIFEROL [Concomitant]
     Active Substance: CHOLECALCIFEROL
     Dosage: STRENGTH : 5600 UNITS / BRAND NAME NOT SPECIFIED, THERAPY START DATE  AND  THERAPY END DATE : ASKED
  4. INSULIN ASPART [Concomitant]
     Active Substance: INSULIN ASPART
     Dosage: INJVLST 100E/ML / BRAND NAME NOT SPECIFIED, 100 UNITS/ML (UNITS PER MILLILITER),THERAPY START DATE
  5. LISINOPRIL [Concomitant]
     Active Substance: LISINOPRIL
     Dosage: 10 MG (MILLIGRAM), STRENGTH : 10 MG, BRAND NAME NOT SPECIFIED, THERAPY START DATE  AND  THERAPY END
  6. METOCLOPRAMIDE [Concomitant]
     Active Substance: METOCLOPRAMIDE
     Dosage: 10 MG/ML (MILLIGRAMS PER MILLILITER),METOCLOPRAMIDE INJVLST 10MG/ML (ALS HCL) / BRAND NAME NOT SPECI
  7. INSULIN DEGLUDEC [Concomitant]
     Active Substance: INSULIN DEGLUDEC
     Dosage: 100 UNITS/ML (UNITS PER MILLILITER),100E/ML INJVLST / BRAND NAME NOT SPECIFIED, THERAPY START DATE
  8. ASPIRIN [Concomitant]
     Active Substance: ASPIRIN
     Dosage: 80 MG (MILLIGRAM), STRENGTH ; 80 MG, BRAND NAME NOT SPECIFIED, THERAPY START DATE  AND  THERAPY END
  9. AMLODIPINE [Concomitant]
     Active Substance: AMLODIPINE BESYLATE
     Dosage: 5 MG (MILLIGRAM), STRENGTH : 5 MG, BRAND NAME NOT SPECIFIED, THERAPY START DATE  AND  THERAPY END DA
  10. OMEPRAZOLE [Concomitant]
     Active Substance: OMEPRAZOLE
     Dosage: 20 MG (MILLIGRAM), CAPSULE MSR  STRENGTH : 20 MG/ BRAND NAME NOT SPECIFIED, THERAPY START DATE  AND
  11. ATENOLOL [Concomitant]
     Active Substance: ATENOLOL
     Dosage: 25 MG (MILLIGRAM), STRENGTH : 25 MG / BRAND NAME NOT SPECIFIED, THERAPY START DATE  AND  THERAPY END
  12. LACTATED RINGERS SOLUTION [Concomitant]
     Active Substance: CALCIUM CHLORIDE\POTASSIUM CHLORIDE\SODIUM CHLORIDE\SODIUM LACTATE
     Dosage: THERAPY START DATE  AND  THERAPY END DATE : ASKED BUT UNKNOWN,INFVLST (BRAUN/FRESENIUS) / BRAND NAME

REACTIONS (2)
  - Acute kidney injury [Not Recovered/Not Resolved]
  - Tubulointerstitial nephritis [Not Recovered/Not Resolved]

NARRATIVE: CASE EVENT DATE: 20220214
